FAERS Safety Report 10056081 (Version 1)
Quarter: 2014Q2

REPORT INFORMATION
  Report Type: Report from Study
  Country: IL (occurrence: FR)
  Receive Date: 20140403
  Receipt Date: 20140403
  Transmission Date: 20141212
  Serious: Yes (Other)
  Sender: FDA-Public Use
  Company Number: IL-SA-2014SA037360

PATIENT
  Age: 61 Year
  Sex: Male
  Weight: 90 kg

DRUGS (13)
  1. CABAZITAXEL [Suspect]
     Indication: PROSTATE CANCER
     Route: 042
     Dates: start: 20130523, end: 20131128
  2. ANTINEOPLASTIC AGENTS [Suspect]
     Indication: PROSTATE CANCER
     Route: 042
     Dates: start: 20130515, end: 20131212
  3. COUMADINE [Concomitant]
     Indication: COAGULOPATHY
     Route: 048
     Dates: start: 20101013
  4. LEXOMIL [Concomitant]
     Indication: ANXIETY
     Route: 048
     Dates: start: 20091026
  5. EFFERALGAN [Concomitant]
     Indication: PAIN
     Route: 048
     Dates: start: 20130429
  6. PARIET [Concomitant]
     Indication: GASTROOESOPHAGEAL REFLUX DISEASE
     Route: 048
     Dates: start: 20130313
  7. BEFIZAL [Concomitant]
     Indication: HYPERCHOLESTEROLAEMIA
     Route: 048
  8. SYMBICORT [Concomitant]
     Indication: ASTHMA
     Route: 055
     Dates: start: 200506
  9. ZOLADEX [Concomitant]
     Indication: PROSTATE CANCER
     Dosage: 1 IN 3 MONTHS
     Route: 058
     Dates: start: 2003
  10. ALIZAPRIDE [Concomitant]
     Indication: PREMEDICATION
     Dosage: 1 IN 3 WEEK
     Route: 042
     Dates: start: 20130523, end: 20131128
  11. SOLUPRED [Concomitant]
     Indication: PROSTATE CANCER
     Route: 048
     Dates: start: 20130523
  12. FILGRASTIM [Concomitant]
     Indication: NEUTROPENIA
     Dosage: SEVEN TIMES AFTER CHEMOTHERAPY (48 MU)
     Route: 058
     Dates: start: 20130526
  13. VOGALENE [Concomitant]
     Indication: NAUSEA
     Route: 048
     Dates: start: 20131010

REACTIONS (1)
  - Vitreous haemorrhage [Not Recovered/Not Resolved]
